FAERS Safety Report 20142435 (Version 1)
Quarter: 2021Q4

REPORT INFORMATION
  Report Type: Report from Study
  Country: US (occurrence: US)
  Receive Date: 20211202
  Receipt Date: 20211202
  Transmission Date: 20220303
  Serious: Yes (Other)
  Sender: FDA-Public Use
  Company Number: US-TAKEDA-2021TUS033317

PATIENT
  Age: 71 Year
  Sex: Female
  Weight: 79 kg

DRUGS (22)
  1. HUMAN IMMUNOGLOBULIN G [Suspect]
     Active Substance: HUMAN IMMUNOGLOBULIN G
     Indication: Immunodeficiency common variable
     Dosage: 20 GRAM, Q2WEEKS
     Route: 058
     Dates: start: 20210416
  2. ACETAMINOPHEN [Concomitant]
     Active Substance: ACETAMINOPHEN
  3. DIPHENHYDRAMINE [Concomitant]
     Active Substance: DIPHENHYDRAMINE
  4. EPINEPHRINE [Concomitant]
     Active Substance: EPINEPHRINE
  5. LMX [Concomitant]
  6. CYANOCOBALAMIN [Concomitant]
     Active Substance: CYANOCOBALAMIN
  7. OXYGEN [Concomitant]
     Active Substance: OXYGEN
  8. PRALUENT [Concomitant]
     Active Substance: ALIROCUMAB
  9. RINVOQ [Concomitant]
     Active Substance: UPADACITINIB
  10. CLOPIDOGREL [Concomitant]
     Active Substance: CLOPIDOGREL BISULFATE
  11. BUPROPION [Concomitant]
     Active Substance: BUPROPION
  12. HYDROCHLOROTHIAZIDE [Concomitant]
     Active Substance: HYDROCHLOROTHIAZIDE
  13. GABAPENTIN [Concomitant]
     Active Substance: GABAPENTIN
  14. ROPINIROLE [Concomitant]
     Active Substance: ROPINIROLE
  15. PANTOPRAZOLE [Concomitant]
     Active Substance: PANTOPRAZOLE
  16. TYLENOL PM [Concomitant]
     Active Substance: ACETAMINOPHEN\DIPHENHYDRAMINE
  17. SERTRALINE [Concomitant]
     Active Substance: SERTRALINE HYDROCHLORIDE
  18. RAMIPRIL [Concomitant]
     Active Substance: RAMIPRIL
  19. EZETIMIBE [Concomitant]
     Active Substance: EZETIMIBE
  20. AMLODIPINE [Concomitant]
     Active Substance: AMLODIPINE BESYLATE
  21. HYDROCORTISONE [Concomitant]
     Active Substance: HYDROCORTISONE
  22. ERGOCALCIFEROL [Concomitant]
     Active Substance: ERGOCALCIFEROL

REACTIONS (3)
  - Humerus fracture [Unknown]
  - Urinary tract infection [Not Recovered/Not Resolved]
  - Fall [Unknown]

NARRATIVE: CASE EVENT DATE: 20211028
